FAERS Safety Report 5278743-X (Version None)
Quarter: 2007Q1

REPORT INFORMATION
  Report Type: 
  Country: None (occurrence: None)
  Receive Date: 20061213
  Receipt Date: 20060410
  Transmission Date: 20070707
  Serious: No
  Sender: FDA-Public Use
  Company Number: 2006AC00729

PATIENT
  Age: 68 Year
  Sex: Male

DRUGS (4)
  1. QUETIAPINE FUMARATE [Suspect]
     Indication: ABNORMAL BEHAVIOUR
  2. RISPERDAL [Suspect]
     Indication: ABNORMAL BEHAVIOUR
  3. TRAZODONE HCL [Suspect]
     Indication: ABNORMAL BEHAVIOUR
  4. VALPROIC ACID [Suspect]
     Indication: ABNORMAL BEHAVIOUR

REACTIONS (2)
  - GAIT DISTURBANCE [None]
  - SEDATION [None]
